FAERS Safety Report 14262240 (Version 1)
Quarter: 2017Q4

REPORT INFORMATION
  Report Type: Spontaneous
  Country: US (occurrence: US)
  Receive Date: 20171208
  Receipt Date: 20171208
  Transmission Date: 20180321
  Serious: No
  Sender: FDA-Public Use
  Company Number: US-KYOWAKIRIN-2017BKK000562

PATIENT

DRUGS (3)
  1. SANCUSO [Suspect]
     Active Substance: GRANISETRON
     Indication: IRRITABLE BOWEL SYNDROME
     Dosage: 1 DF, UNK
     Route: 065
     Dates: start: 2013
  2. SANCUSO [Suspect]
     Active Substance: GRANISETRON
     Indication: MALAISE
     Dosage: 1 DF, UNK
     Route: 065
     Dates: start: 2017
  3. SANCUSO [Suspect]
     Active Substance: GRANISETRON
     Indication: NAUSEA

REACTIONS (1)
  - Product use in unapproved indication [Not Recovered/Not Resolved]

NARRATIVE: CASE EVENT DATE: 2013
